FAERS Safety Report 12810091 (Version 2)
Quarter: 2017Q1

REPORT INFORMATION
  Report Type: Report from Study
  Country: CO (occurrence: CO)
  Receive Date: 20161005
  Receipt Date: 20170314
  Transmission Date: 20170428
  Serious: No
  Sender: FDA-Public Use
  Company Number: PHHY2016CO136889

PATIENT
  Age: 57 Year
  Sex: Female
  Weight: 64 kg

DRUGS (4)
  1. LEVOTHYROXINE. [Concomitant]
     Active Substance: LEVOTHYROXINE
     Indication: HYPERTHYROIDISM
     Dosage: 100 MG, QD
     Route: 065
     Dates: start: 20150617
  2. TASIGNA [Suspect]
     Active Substance: NILOTINIB
     Indication: CHRONIC MYELOID LEUKAEMIA
     Dosage: 200 MG, BID (2 CAPSULES EVERY 12 HOURS)
     Route: 048
     Dates: start: 20140122
  3. METOPROLOL. [Concomitant]
     Active Substance: METOPROLOL
     Indication: ARRHYTHMIA
  4. METOPROLOL. [Concomitant]
     Active Substance: METOPROLOL
     Indication: HYPERTENSION
     Dosage: 100 MG, BID (EVERY 12 HOURS)
     Route: 048
     Dates: start: 20150917

REACTIONS (6)
  - Headache [Unknown]
  - Constipation [Unknown]
  - Sleep disorder [Unknown]
  - Rectal fissure [Unknown]
  - Dyschezia [Unknown]
  - Pain [Unknown]

NARRATIVE: CASE EVENT DATE: 20140822
